FAERS Safety Report 6366218-6 (Version None)
Quarter: 2009Q3

REPORT INFORMATION
  Report Type: 
  Country: None (occurrence: None)
  Receive Date: 20090921
  Receipt Date: 20090916
  Transmission Date: 20100115
  Serious: Yes (Hospitalization)
  Sender: FDA-Public Use
  Company Number: FR-SP-2009-02699

PATIENT
  Age: 76 Year
  Sex: Male

DRUGS (7)
  1. IMMUCYST [Suspect]
     Indication: TRANSURETHRAL BLADDER RESECTION
     Dosage: 1 DF IN 1 WEEK
     Route: 043
     Dates: start: 20080801
  2. ZOCOR [Concomitant]
     Indication: HYPERCHOLESTEROLAEMIA
     Dates: end: 20081029
  3. LASIX [Concomitant]
     Indication: HYPERTENSION
     Dates: end: 20081029
  4. SERMION (NICERGOLINE) [Concomitant]
     Indication: INTERMITTENT CLAUDICATION
  5. PLAVIX [Concomitant]
     Indication: ARTERIAL THROMBOSIS
     Dates: end: 20081029
  6. ALLOPURINOL [Concomitant]
     Indication: HYPERURICAEMIA
  7. DILTIAZEM HCL [Concomitant]
     Indication: ANGINA PECTORIS

REACTIONS (4)
  - ASCITES [None]
  - GENERAL PHYSICAL HEALTH DETERIORATION [None]
  - NODULE [None]
  - TUBERCULOSIS GASTROINTESTINAL [None]
